FAERS Safety Report 25649098 (Version 1)
Quarter: 2025Q3

REPORT INFORMATION
  Report Type: Spontaneous
  Country: US (occurrence: US)
  Receive Date: 20250806
  Receipt Date: 20250806
  Transmission Date: 20251021
  Serious: No
  Sender: PFIZER
  Company Number: US-PFIZER INC-202500156616

PATIENT
  Age: 41 Year
  Sex: Female

DRUGS (1)
  1. VELSIPITY [Suspect]
     Active Substance: ETRASIMOD ARGININE
     Indication: Inflammatory bowel disease
     Dosage: 2MG PO ONCE DAILY
     Route: 048

REACTIONS (1)
  - Condition aggravated [Unknown]
